FAERS Safety Report 12812772 (Version 1)
Quarter: 2016Q4

REPORT INFORMATION
  Report Type: Report from Study
  Country: US (occurrence: US)
  Receive Date: 20161005
  Receipt Date: 20161005
  Transmission Date: 20170207
  Serious: Yes (Other)
  Sender: FDA-Public Use
  Company Number: US-ROCHE-1835937

PATIENT
  Age: 60 Year
  Sex: Female
  Weight: 71.4 kg

DRUGS (2)
  1. FOSBRETABULIN TROMETHAMINE [Suspect]
     Active Substance: FOSBRETABULIN TROMETHAMINE
     Indication: OVARIAN EPITHELIAL CANCER
     Dosage: 20/OCT/2011,10/NOV/2011, 01/DEC/2011, 12/DEC/2011 AND 22/DEC/2011
     Route: 042
     Dates: start: 20110929, end: 20111222
  2. BEVACIZUMAB [Suspect]
     Active Substance: BEVACIZUMAB
     Indication: OVARIAN EPITHELIAL CANCER
     Dosage: 20/OCT/2011,10/NOV/2011, 01/DEC/2011, 12/DEC/2011 AND 22/DEC/2011
     Route: 042
     Dates: start: 20110929, end: 20111222

REACTIONS (5)
  - Alanine aminotransferase increased [Unknown]
  - Aspartate aminotransferase increased [Unknown]
  - Rectal haemorrhage [Unknown]
  - Hypertension [Unknown]
  - Blood alkaline phosphatase increased [Unknown]
